FAERS Safety Report 9679581 (Version 1)
Quarter: 2013Q4

REPORT INFORMATION
  Report Type: Spontaneous
  Country: US (occurrence: US)
  Receive Date: 20131109
  Receipt Date: 20131109
  Transmission Date: 20140711
  Serious: No
  Sender: FDA-Public Use
  Company Number: US-SA-2013SA104400

PATIENT
  Sex: Male

DRUGS (2)
  1. ALLEGRA-D [Suspect]
     Indication: RHINORRHOEA
     Route: 048
     Dates: start: 20130706
  2. MUCINEX [Concomitant]
     Indication: CHEST DISCOMFORT
     Route: 065

REACTIONS (1)
  - Drug ineffective [Unknown]
